FAERS Safety Report 25165676 (Version 2)
Quarter: 2025Q2

REPORT INFORMATION
  Report Type: Spontaneous
  Country: US (occurrence: US)
  Receive Date: 20250407
  Receipt Date: 20250520
  Transmission Date: 20250716
  Serious: No
  Sender: LUPIN
  Company Number: US-LUPIN PHARMACEUTICALS INC.-2025-02533

PATIENT
  Age: 6 Year

DRUGS (1)
  1. OSELTAMIVIR PHOSPHATE [Suspect]
     Active Substance: OSELTAMIVIR PHOSPHATE
     Indication: Influenza

REACTIONS (4)
  - Treatment noncompliance [Unknown]
  - Product taste abnormal [Unknown]
  - Product odour abnormal [Unknown]
  - Wrong technique in product usage process [Unknown]
